FAERS Safety Report 9801165 (Version 1)
Quarter: 2014Q1

REPORT INFORMATION
  Report Type: Spontaneous
  Country: IT (occurrence: IT)
  Receive Date: 20140107
  Receipt Date: 20140107
  Transmission Date: 20141002
  Serious: Yes (Hospitalization)
  Sender: FDA-Public Use
  Company Number: IT-BAYER-2013-159509

PATIENT
  Age: 76 Year
  Sex: Male
  Weight: 87 kg

DRUGS (8)
  1. GLUCOBAY [Suspect]
     Indication: DIABETES MELLITUS
     Dosage: DAILY DOSE 2 DF
     Route: 048
     Dates: start: 20130801, end: 20131028
  2. TAVANIC [Suspect]
     Indication: BRONCHITIS
     Dosage: DAILY DOSE 1 DF
     Route: 048
     Dates: start: 20131026, end: 20131028
  3. ONGLYZA [Interacting]
     Indication: DIABETES MELLITUS
     Dosage: DAILY DOSE 1 DF
     Route: 048
     Dates: start: 20130801, end: 20131028
  4. TRIATEC HCT [Concomitant]
     Indication: HYPERTENSION
     Dosage: DAILY DOSE 2 DF
     Route: 048
     Dates: start: 20130101, end: 20131028
  5. SELOKEN [Concomitant]
     Indication: HYPERTENSION
     Dosage: DAILY DOSE .5 DF
     Route: 048
     Dates: start: 20130101, end: 20131028
  6. CARDURA [Concomitant]
     Indication: HYPERTENSION
     Dosage: DAILY DOSE 2 DF
     Route: 048
     Dates: start: 20130101, end: 20131028
  7. CARDIOASPIRIN [Concomitant]
     Indication: THROMBOSIS PROPHYLAXIS
     Dosage: DAILY DOSE 1 DF
     Route: 048
     Dates: start: 20130101, end: 20131028
  8. DELTACORTENE [Concomitant]
     Dosage: UNK
     Dates: start: 201308

REACTIONS (4)
  - Hypoglycaemic coma [Recovered/Resolved]
  - Confusional state [Recovered/Resolved]
  - Drug interaction [None]
  - Hypoglycaemia [Recovered/Resolved]
